FAERS Safety Report 6906483-7 (Version None)
Quarter: 2010Q3

REPORT INFORMATION
  Report Type: 
  Country: None (occurrence: None)
  Receive Date: 20100804
  Receipt Date: 20100723
  Transmission Date: 20110219
  Serious: Yes (Disabling, Other)
  Sender: FDA-Public Use
  Company Number: FR-PFIZER INC-2010092286

PATIENT
  Age: 66 Year
  Sex: Male
  Weight: 57 kg

DRUGS (2)
  1. NEURONTIN [Suspect]
     Indication: ENCEPHALITIS HERPES
     Dosage: UNK
     Dates: start: 20100101
  2. CLONAZEPAM [Concomitant]
     Dosage: 12 GTT, UNK

REACTIONS (3)
  - FEELING DRUNK [None]
  - HYPOAESTHESIA [None]
  - PAIN [None]
